FAERS Safety Report 7067989-6 (Version None)
Quarter: 2010Q4

REPORT INFORMATION
  Report Type: 
  Country: None (occurrence: None)
  Receive Date: 20101020
  Receipt Date: 20101013
  Transmission Date: 20110411
  Serious: Yes (Other)
  Sender: FDA-Public Use
  Company Number: 2010SP055036

PATIENT
  Age: 50 Year
  Sex: Female
  Weight: 85 kg

DRUGS (4)
  1. ROCURONIUM BROMIDE [Suspect]
     Indication: NEUROMUSCULAR BLOCKADE
     Dosage: (80 MG;ONCE;IV) (55 MG; IV)
     Route: 042
  2. PROPOFOL [Concomitant]
  3. FENTANYL [Concomitant]
  4. SEVOFLURANE [Concomitant]

REACTIONS (1)
  - NEUROMUSCULAR BLOCK PROLONGED [None]
